FAERS Safety Report 5428052-0 (Version None)
Quarter: 2007Q3

REPORT INFORMATION
  Report Type: 
  Country: None (occurrence: None)
  Receive Date: 20070731
  Receipt Date: 20070425
  Transmission Date: 20080115
  Serious: No
  Sender: FDA-Public Use
  Company Number: US200704005991

PATIENT
  Age: 54 Year
  Sex: Female
  Weight: 125.6 kg

DRUGS (4)
  1. BYETTA [Suspect]
     Indication: TYPE 2 DIABETES MELLITUS
     Dosage: 10 UG, 2/D, SUBCUTANEOUS
     Route: 058
     Dates: start: 20060101, end: 20060101
  2. EXENATIDE PEN, DISPOSABLE DEVICE (EXENATIDE PEN) [Concomitant]
  3. LANTUS [Concomitant]
  4. HUMULIN REGULAR (INSULIN HUMAN) [Concomitant]

REACTIONS (3)
  - BLOOD GLUCOSE INCREASED [None]
  - VOMITING [None]
  - WEIGHT FLUCTUATION [None]
